FAERS Safety Report 9646216 (Version 2)
Quarter: 2013Q4

REPORT INFORMATION
  Report Type: Report from Study
  Country: US (occurrence: US)
  Receive Date: 20131025
  Receipt Date: 20131029
  Transmission Date: 20140711
  Serious: No
  Sender: FDA-Public Use
  Company Number: US-ROCHE-1293566

PATIENT
  Sex: Female
  Weight: 93.98 kg

DRUGS (7)
  1. XOLAIR [Suspect]
     Indication: ASTHMA
     Route: 065
     Dates: start: 201012, end: 20130618
  2. SYMBICORT [Concomitant]
     Indication: ASTHMA
     Route: 050
     Dates: start: 20131003
  3. VENTOLIN [Concomitant]
     Indication: ASTHMA
     Dosage: 2 PUFFS  4 OR 5 TIMES A DAY
     Route: 050
     Dates: start: 20131003
  4. XOPENEX [Concomitant]
     Indication: ASTHMA
     Route: 050
     Dates: start: 20131003
  5. PREDNISOLONE [Concomitant]
     Indication: ASTHMA
     Route: 048
     Dates: start: 20131003
  6. ZANTAC [Concomitant]
     Route: 048
     Dates: start: 20131003
  7. TRAMADOL [Concomitant]
     Route: 048
     Dates: start: 20131003

REACTIONS (1)
  - Pregnancy [Unknown]
